FAERS Safety Report 14026383 (Version 1)
Quarter: 2017Q3

REPORT INFORMATION
  Report Type: Spontaneous
  Country: US (occurrence: US)
  Receive Date: 20170929
  Receipt Date: 20170929
  Transmission Date: 20171128
  Serious: Yes (Hospitalization, Other)
  Sender: FDA-Public Use
  Company Number: US-TAKEDA-2017TUS019823

PATIENT
  Age: 55 Year
  Sex: Female
  Weight: 72.56 kg

DRUGS (2)
  1. ENTYVIO [Suspect]
     Active Substance: VEDOLIZUMAB
     Indication: CROHN^S DISEASE
     Dosage: UNK
     Route: 065
     Dates: start: 2017
  2. HUMIRA [Suspect]
     Active Substance: ADALIMUMAB
     Indication: CROHN^S DISEASE
     Dosage: 160 MG, QD
     Route: 058
     Dates: start: 2017, end: 2017

REACTIONS (5)
  - Skin disorder [Unknown]
  - Blister [Recovered/Resolved]
  - Papillary thyroid cancer [Recovered/Resolved]
  - Skin exfoliation [Recovered/Resolved]
  - Rash macular [Recovered/Resolved]

NARRATIVE: CASE EVENT DATE: 2017
